FAERS Safety Report 13031916 (Version 2)
Quarter: 2016Q4

REPORT INFORMATION
  Report Type: Spontaneous
  Country: IT (occurrence: IT)
  Receive Date: 20161215
  Receipt Date: 20161227
  Transmission Date: 20170207
  Serious: Yes (Other)
  Sender: FDA-Public Use
  Company Number: IT-PFIZER INC-2016576510

PATIENT
  Age: 38 Year
  Sex: Male

DRUGS (3)
  1. VALIUM [Suspect]
     Active Substance: DIAZEPAM
     Dosage: 20 ML, TOTAL
     Route: 048
     Dates: start: 20141122, end: 20141122
  2. TAVOR (LORAZEPAM) [Suspect]
     Active Substance: LORAZEPAM
     Dosage: 20 MG, TOTAL
     Route: 048
     Dates: start: 20141122, end: 20141122
  3. ALPRAZOLAM. [Suspect]
     Active Substance: ALPRAZOLAM
     Dosage: UNK
     Route: 048
     Dates: start: 20141122, end: 20141122

REACTIONS (3)
  - Drug abuse [Unknown]
  - Sopor [Unknown]
  - Somnolence [Unknown]

NARRATIVE: CASE EVENT DATE: 20141123
